FAERS Safety Report 17004255 (Version 1)
Quarter: 2019Q4

REPORT INFORMATION
  Report Type: Other
  Country: US (occurrence: US)
  Receive Date: 20191107
  Receipt Date: 20191107
  Transmission Date: 20200122
  Serious: Yes (Life-Threatening, Hospitalization)
  Sender: FDA-Public Use
  Company Number: US-EMD SERONO-9126323

PATIENT
  Age: 70 Year
  Sex: Female

DRUGS (1)
  1. METFORMIN [Suspect]
     Active Substance: METFORMIN HYDROCHLORIDE
     Indication: TYPE 2 DIABETES MELLITUS

REACTIONS (5)
  - Lactic acidosis [Recovering/Resolving]
  - MELAS syndrome [Unknown]
  - Encephalopathy [Unknown]
  - Acute kidney injury [Recovering/Resolving]
  - Ischaemic stroke [Unknown]
